FAERS Safety Report 17026323 (Version 1)
Quarter: 2019Q4

REPORT INFORMATION
  Report Type: Spontaneous
  Country: US (occurrence: US)
  Receive Date: 20191113
  Receipt Date: 20191113
  Transmission Date: 20200122
  Serious: Yes (Hospitalization)
  Sender: FDA-Public Use
  Company Number: US-SA-2019SA314033

PATIENT
  Age: 33 Year
  Sex: Female

DRUGS (2)
  1. DUPIXENT [Suspect]
     Active Substance: DUPILUMAB
     Indication: ASTHMA
     Dosage: 300 MG, QOW
     Route: 058
     Dates: start: 20190706
  2. EPINEPHRINE. [Suspect]
     Active Substance: EPINEPHRINE
     Indication: DAIRY INTOLERANCE
     Dosage: UNK

REACTIONS (6)
  - Condition aggravated [Unknown]
  - Cluster headache [Unknown]
  - Dairy intolerance [Unknown]
  - Injection site pain [Unknown]
  - Hypersensitivity [Unknown]
  - Asthma [Unknown]

NARRATIVE: CASE EVENT DATE: 2019
